FAERS Safety Report 19908511 (Version 1)
Quarter: 2021Q4

REPORT INFORMATION
  Report Type: Spontaneous
  Country: BR (occurrence: BR)
  Receive Date: 20211002
  Receipt Date: 20211002
  Transmission Date: 20220304
  Serious: No
  Sender: FDA-Public Use
  Company Number: BR-LUPIN PHARMACEUTICALS INC.-2021-18406

PATIENT
  Age: 1 Week
  Sex: Female

DRUGS (3)
  1. SULFAMETHOXAZOLE AND TRIMETHOPRIM [Suspect]
     Active Substance: SULFAMETHOXAZOLE\TRIMETHOPRIM
     Indication: Anti-infective therapy
     Dosage: UNK
     Route: 065
  2. FLUCONAZOLE [Suspect]
     Active Substance: FLUCONAZOLE
     Indication: Anti-infective therapy
     Dosage: UNK
     Route: 065
  3. PENICILLIN G [Suspect]
     Active Substance: PENICILLIN G
     Indication: Anti-infective therapy
     Dosage: UNK
     Route: 065

REACTIONS (1)
  - Dermatitis diaper [Unknown]
